FAERS Safety Report 9695934 (Version 4)
Quarter: 2015Q1

REPORT INFORMATION
  Report Type: Spontaneous
  Country: ES (occurrence: ES)
  Receive Date: 20131119
  Receipt Date: 20150313
  Transmission Date: 20150721
  Serious: Yes (Hospitalization, Other)
  Sender: FDA-Public Use
  Company Number: ES-ABBVIE-13P-144-1168971-00

PATIENT
  Age: 59 Year
  Sex: Female

DRUGS (8)
  1. CEMIDON [Concomitant]
     Active Substance: ISONIAZID
     Indication: TUBERCULIN TEST POSITIVE
     Route: 048
     Dates: start: 201305
  2. NEXIUM [Concomitant]
     Active Substance: ESOMEPRAZOLE MAGNESIUM
     Indication: GASTROOESOPHAGEAL REFLUX DISEASE
     Route: 048
  3. PREDNISONA [Concomitant]
     Active Substance: PREDNISONE
     Indication: CROHN^S DISEASE
     Route: 048
     Dates: end: 20131106
  4. CEMIDON [Concomitant]
     Active Substance: ISONIAZID
     Indication: ANTIBIOTIC PROPHYLAXIS
  5. CORTICOIDS [Concomitant]
     Active Substance: UNSPECIFIED INGREDIENT
     Indication: CROHN^S DISEASE
     Dates: start: 201303
  6. CALCIO [Concomitant]
     Active Substance: CALCIUM
     Indication: PRODUCT USED FOR UNKNOWN INDICATION
  7. HUMIRA [Suspect]
     Active Substance: ADALIMUMAB
     Indication: CROHN^S DISEASE
     Dosage: INDUCTION DOSE
     Route: 058
     Dates: start: 20130906, end: 20131107
  8. PREDNISONA [Concomitant]
     Active Substance: PREDNISONE
     Dates: start: 20131107

REACTIONS (8)
  - Interstitial lung disease [Recovered/Resolved]
  - Traumatic lung injury [Unknown]
  - Rhinovirus infection [Unknown]
  - Dyspnoea [Recovered/Resolved]
  - Asthenia [Unknown]
  - Organising pneumonia [Recovering/Resolving]
  - Cough [Unknown]
  - Fatigue [Unknown]

NARRATIVE: CASE EVENT DATE: 2013
